FAERS Safety Report 4930448-8 (Version None)
Quarter: 2006Q1

REPORT INFORMATION
  Report Type: 
  Country: None (occurrence: None)
  Receive Date: 20060118
  Receipt Date: 20050608
  Transmission Date: 20060701
  Serious: No
  Sender: FDA-Public Use
  Company Number: 2005001080

PATIENT
  Age: 78 Year
  Sex: Female
  Weight: 64.4108 kg

DRUGS (7)
  1. TARCEVA [Suspect]
     Indication: NON-SMALL CELL LUNG CANCER
     Dosage: 150 MG (QD), ORAL
     Route: 048
  2. VICODIN [Concomitant]
  3. ALPRAZOLAM [Concomitant]
  4. WARFARIN SODIUM [Concomitant]
  5. HCTZ (HYDROCHLOROTHIAZIDE) [Concomitant]
  6. ASPIRIN [Concomitant]
  7. TRIAZOLAM [Concomitant]

REACTIONS (3)
  - HAIR GROWTH ABNORMAL [None]
  - RASH [None]
  - SKIN EXFOLIATION [None]
